FAERS Safety Report 8570306-3 (Version None)
Quarter: 2012Q3

REPORT INFORMATION
  Report Type: 
  Country: None (occurrence: None)
  Receive Date: 20120803
  Receipt Date: 20120723
  Transmission Date: 20120928
  Serious: Yes (Disabling, Other)
  Sender: FDA-Public Use
  Company Number: US-009507513-1207USA011243

PATIENT

DRUGS (11)
  1. VERAPAMIL HCL [Suspect]
     Dosage: 40 MG, TID
     Route: 048
  2. ZOCOR [Suspect]
     Dosage: 40 MG, UNK
     Route: 048
  3. ACETAMINOPHEN AND CODEINE PHOSPHATE [Concomitant]
  4. PANADEINE (ACETAMINOPHEN (+) CAFFEINE (+) CODEINE PHOSPHATE) [Concomitant]
  5. QVAR 40 [Concomitant]
  6. SALMETEROL [Concomitant]
  7. BRIMONIDINE TARTRATE [Concomitant]
  8. FUROSEMIDE [Concomitant]
  9. ASPIRIN [Concomitant]
  10. LISINOPRIL [Concomitant]
  11. ALBUTEROL [Concomitant]

REACTIONS (3)
  - HYPOKINESIA [None]
  - BLOOD CREATINE PHOSPHOKINASE INCREASED [None]
  - MYOSITIS [None]
